FAERS Safety Report 20588789 (Version 1)
Quarter: 2022Q1

REPORT INFORMATION
  Report Type: Spontaneous
  Country: IT (occurrence: IT)
  Receive Date: 20220314
  Receipt Date: 20220314
  Transmission Date: 20220423
  Serious: Yes (Hospitalization, Other)
  Sender: FDA-Public Use
  Company Number: None

PATIENT
  Age: 76 Year
  Sex: Male

DRUGS (4)
  1. TAMSULOSIN HYDROCHLORIDE [Suspect]
     Active Substance: TAMSULOSIN HYDROCHLORIDE
     Indication: Benign prostatic hyperplasia
     Dosage: 1 DF
     Route: 048
  2. ENALAPRIL MALEATE [Suspect]
     Active Substance: ENALAPRIL MALEATE
     Indication: Hypertension
     Dosage: 10 MG
     Route: 048
  3. SULODEXIDE [Suspect]
     Active Substance: SULODEXIDE
     Indication: Skin ulcer
     Dosage: 1 DF
     Route: 048
  4. TENORMIN [Suspect]
     Active Substance: ATENOLOL
     Indication: Hypertension
     Dosage: 100 MG
     Route: 048

REACTIONS (3)
  - Skin abrasion [Unknown]
  - Head injury [Unknown]
  - Syncope [Unknown]

NARRATIVE: CASE EVENT DATE: 20171003
